FAERS Safety Report 8906266 (Version 1)
Quarter: 2012Q4

REPORT INFORMATION
  Report Type: Spontaneous
  Country: US (occurrence: None)
  Receive Date: 20121112
  Receipt Date: 20121112
  Transmission Date: 20130627
  Serious: Yes (Hospitalization)
  Sender: FDA-Public Use
  Company Number: None

PATIENT
  Age: 55 Year
  Sex: Female
  Weight: 165 kg

DRUGS (1)
  1. LISINOPRIL/HCTZ [Suspect]
     Dosage: 1 tablet, twice daily, po
     Route: 048
     Dates: start: 20120614, end: 20120724

REACTIONS (1)
  - Protrusion tongue [None]
